FAERS Safety Report 18926809 (Version 10)
Quarter: 2021Q2

REPORT INFORMATION
  Report Type: Report from Study
  Country: JP (occurrence: JP)
  Receive Date: 20210223
  Receipt Date: 20210426
  Transmission Date: 20210717
  Serious: Yes (Death, Hospitalization)
  Sender: FDA-Public Use
  Company Number: NVSC2021JP035151

PATIENT
  Age: 72 Year
  Sex: Male
  Weight: 59.1 kg

DRUGS (99)
  1. KYMRIAH [Suspect]
     Active Substance: TISAGENLECLEUCEL
     Indication: LYMPHOMA
     Dosage: 1.12X10^8, ONCE/SINGLE
     Route: 042
     Dates: start: 20200210
  2. ALBUMIN [Concomitant]
     Active Substance: ALBUMIN HUMAN
     Dosage: 25 %
     Route: 065
     Dates: start: 20210214, end: 20210214
  3. MAGNESIUM SULFATE. [Concomitant]
     Active Substance: MAGNESIUM SULFATE
     Dosage: UNK
     Route: 065
     Dates: start: 20210120, end: 20210129
  4. TEICOPLANIN [Concomitant]
     Active Substance: TEICOPLANIN
     Dosage: UNK
     Route: 065
     Dates: start: 20210212, end: 20210212
  5. NORADRENALINE [Concomitant]
     Active Substance: NOREPINEPHRINE
     Dosage: UNK
     Route: 065
     Dates: start: 20210214
  6. THROMBOMODULIN ALFA [Concomitant]
     Active Substance: THROMBOMODULIN ALFA
     Indication: COAGULOPATHY
     Dosage: UNK
     Route: 065
     Dates: start: 20210121, end: 20210202
  7. HIZENTRA [Concomitant]
     Active Substance: HUMAN IMMUNOGLOBULIN G
     Indication: HYPOGAMMAGLOBULINAEMIA
     Dosage: 20% 2G/10 ML
     Route: 058
     Dates: start: 20210104, end: 20210125
  8. SODIUM CHLORIDE. [Concomitant]
     Active Substance: SODIUM CHLORIDE
     Dosage: UNK
     Route: 065
     Dates: start: 20210202, end: 20210202
  9. POTASSIUM CHLORIDE. [Concomitant]
     Active Substance: POTASSIUM CHLORIDE
     Dosage: UNK
     Route: 065
     Dates: start: 20210122, end: 20210124
  10. CICLOSPORIN [Concomitant]
     Active Substance: CYCLOSPORINE
     Dosage: UNK
     Route: 065
     Dates: start: 20210213, end: 20210214
  11. INSULIN HUMAN [Concomitant]
     Active Substance: INSULIN HUMAN
     Dosage: UNK
     Route: 065
     Dates: start: 20210205, end: 20210206
  12. ALBUMIN [Concomitant]
     Active Substance: ALBUMIN HUMAN
     Indication: HYPOALBUMINAEMIA
     Dosage: 25 %
     Route: 065
     Dates: start: 20210124, end: 20210124
  13. ELNEOPA NO.2 [Concomitant]
     Active Substance: AMINO ACIDS\DEXTROSE\ELECTROLYTES NOS\MINERALS\VITAMINS
     Indication: WEIGHT DECREASED
     Dosage: UNK
     Route: 065
     Dates: start: 20210103, end: 20210129
  14. ACICLOVIR [Concomitant]
     Active Substance: ACYCLOVIR
     Indication: GASTROINTESTINAL ULCER
     Dosage: UNK
     Route: 065
     Dates: start: 20210208, end: 20210208
  15. SOLDEM 3A [Concomitant]
     Active Substance: CARBOHYDRATES\POTASSIUM CHLORIDE\SODIUM CHLORIDE\SODIUM LACTATE
     Dosage: UNK
     Route: 065
     Dates: start: 20210126, end: 20210129
  16. ELNEOPA NO.1 [Concomitant]
     Active Substance: AMINO ACIDS\DEXTROSE\ELECTROLYTES NOS\MINERALS\VITAMINS
     Indication: WEIGHT DECREASED
     Dosage: UNK
     Route: 065
     Dates: start: 20210202, end: 20210202
  17. GLUCOSE [Concomitant]
     Active Substance: DEXTROSE
     Dosage: UNK
     Route: 065
     Dates: start: 20210202, end: 20210202
  18. KIDMIN [Concomitant]
     Active Substance: AMINO ACIDS\ELECTROLYTES NOS
     Indication: WEIGHT DECREASED
     Dosage: UNK
     Route: 065
     Dates: start: 20210204
  19. ANTITHROMBIN GAMMA [Concomitant]
     Indication: COAGULOPATHY
     Dosage: UNK
     Route: 065
     Dates: start: 20210204, end: 20210209
  20. HEPARINOID [Concomitant]
     Active Substance: CHONDROITIN SULFATE (BOVINE)
     Dosage: UNK
     Route: 065
     Dates: start: 20210126
  21. INSULIN HUMAN [Concomitant]
     Active Substance: INSULIN HUMAN
     Indication: HYPERGLYCAEMIA
     Dosage: UNK
     Route: 065
     Dates: start: 20210103, end: 20210129
  22. ALBUMIN [Concomitant]
     Active Substance: ALBUMIN HUMAN
     Dosage: 25 %
     Route: 065
     Dates: start: 20210212, end: 20210212
  23. MAGNESIUM SULFATE. [Concomitant]
     Active Substance: MAGNESIUM SULFATE
     Indication: HYPOMAGNESAEMIA
     Dosage: UNK
     Route: 065
     Dates: start: 20201224, end: 20210131
  24. TEICOPLANIN [Concomitant]
     Active Substance: TEICOPLANIN
     Indication: SEPSIS
     Dosage: UNK
     Route: 065
     Dates: start: 20210204, end: 20210205
  25. PENTAMIDINE ISETIONATE [Concomitant]
     Active Substance: PENTAMIDINE ISETHIONATE
     Indication: PROPHYLAXIS
     Dosage: UNK
     Route: 065
     Dates: start: 20210126, end: 20210126
  26. GABEXATE MESILATE [Concomitant]
     Active Substance: GABEXATE MESYLATE
     Indication: COAGULOPATHY
     Dosage: UNK
     Route: 065
     Dates: start: 20210208, end: 20210210
  27. LEVOFLOXACIN HEMIHYDRATE [Concomitant]
     Active Substance: LEVOFLOXACIN
     Dosage: UNK
     Route: 065
     Dates: start: 20210204
  28. DEXAMETHASONE SODIUM PHOSPHATE. [Concomitant]
     Active Substance: DEXAMETHASONE SODIUM PHOSPHATE
     Indication: ENCEPHALOPATHY
     Dosage: UNK
     Route: 065
     Dates: start: 20210121, end: 20210122
  29. CICLOSPORIN [Concomitant]
     Active Substance: CYCLOSPORINE
     Indication: HAEMOPHAGOCYTIC LYMPHOHISTIOCYTOSIS
     Dosage: UNK
     Route: 065
     Dates: start: 20210213
  30. CYCLOPHOSPHAMIDE. [Concomitant]
     Active Substance: CYCLOPHOSPHAMIDE
     Indication: CHEMOTHERAPY
     Dosage: UNK
     Route: 065
     Dates: start: 20200206, end: 20200208
  31. RITUXIMAB. [Concomitant]
     Active Substance: RITUXIMAB
     Indication: CHEMOTHERAPY
     Dosage: UNK
     Route: 065
     Dates: start: 20191209
  32. GEMCITABINE. [Concomitant]
     Active Substance: GEMCITABINE
     Indication: CHEMOTHERAPY
     Dosage: UNK
     Route: 065
     Dates: start: 20191209
  33. INSULIN HUMAN [Concomitant]
     Active Substance: INSULIN HUMAN
     Dosage: UNK
     Route: 065
     Dates: start: 20210202, end: 20210202
  34. INSULIN HUMAN [Concomitant]
     Active Substance: INSULIN HUMAN
     Dosage: UNK
     Route: 065
     Dates: start: 20210204, end: 20210204
  35. MAGNESIUM SULFATE. [Concomitant]
     Active Substance: MAGNESIUM SULFATE
     Dosage: UNK
     Route: 065
     Dates: start: 20210216, end: 20210216
  36. DALTEPARIN SODIUM [Concomitant]
     Active Substance: DALTEPARIN SODIUM
     Dosage: UNK
     Route: 065
     Dates: start: 20210208, end: 20210208
  37. ACICLOVIR [Concomitant]
     Active Substance: ACYCLOVIR
     Dosage: UNK
     Route: 065
     Dates: start: 20210209, end: 20210212
  38. MEROPENEM. [Concomitant]
     Active Substance: MEROPENEM
     Indication: PNEUMONIA
     Dosage: UNK
     Route: 065
     Dates: start: 20201223
  39. DEXAMETHASONE SODIUM PHOSPHATE. [Concomitant]
     Active Substance: DEXAMETHASONE SODIUM PHOSPHATE
     Dosage: UNK
     Route: 065
     Dates: start: 20210208, end: 20210214
  40. INSULIN HUMAN [Concomitant]
     Active Substance: INSULIN HUMAN
     Dosage: UNK
     Route: 065
     Dates: start: 20210213
  41. ALBUMIN [Concomitant]
     Active Substance: ALBUMIN HUMAN
     Dosage: 25 %
     Route: 065
     Dates: start: 20210215, end: 20210215
  42. TEICOPLANIN [Concomitant]
     Active Substance: TEICOPLANIN
     Indication: STOMATITIS
     Dosage: UNK
     Route: 065
     Dates: start: 20210120, end: 20210122
  43. TEICOPLANIN [Concomitant]
     Active Substance: TEICOPLANIN
     Dosage: UNK
     Route: 065
     Dates: start: 20210207, end: 20210207
  44. TEICOPLANIN [Concomitant]
     Active Substance: TEICOPLANIN
     Dosage: UNK
     Route: 065
     Dates: start: 20210215
  45. DALTEPARIN SODIUM [Concomitant]
     Active Substance: DALTEPARIN SODIUM
     Indication: COAGULOPATHY
     Dosage: UNK
     Route: 065
     Dates: start: 20210203, end: 20210207
  46. OMEPRAZOLE SODIUM [Concomitant]
     Active Substance: OMEPRAZOLE SODIUM
     Indication: GASTROINTESTINAL ULCER
     Dosage: UNK
     Route: 065
     Dates: start: 20210208
  47. MEROPENEM. [Concomitant]
     Active Substance: MEROPENEM
     Dosage: UNK
     Route: 065
     Dates: start: 20210103, end: 20210209
  48. SOLDEM 3A [Concomitant]
     Active Substance: CARBOHYDRATES\POTASSIUM CHLORIDE\SODIUM CHLORIDE\SODIUM LACTATE
     Indication: PROPHYLAXIS
     Dosage: UNK
     Route: 065
     Dates: start: 20210114, end: 20210125
  49. SOLDEM 1 [Concomitant]
     Active Substance: DEXTROSE\SODIUM CHLORIDE\SODIUM LACTATE
     Dosage: UNK
     Route: 065
     Dates: start: 20210205, end: 20210208
  50. SODIUM CHLORIDE. [Concomitant]
     Active Substance: SODIUM CHLORIDE
     Dosage: UNK
     Route: 065
     Dates: start: 20210131, end: 20210131
  51. GLUCOSE [Concomitant]
     Active Substance: DEXTROSE
     Dosage: UNK
     Route: 065
     Dates: start: 20210131, end: 20210131
  52. POTASSIUM CHLORIDE. [Concomitant]
     Active Substance: POTASSIUM CHLORIDE
     Dosage: UNK
     Route: 065
     Dates: start: 20210131, end: 20210131
  53. ZINC OXIDE. [Concomitant]
     Active Substance: ZINC OXIDE
     Indication: SKIN ULCER
     Dosage: UNK
     Route: 065
     Dates: start: 20210206
  54. CISPLATIN. [Concomitant]
     Active Substance: CISPLATIN
     Indication: CHEMOTHERAPY
     Dosage: UNK
     Route: 065
     Dates: start: 20191209
  55. ALBUMIN [Concomitant]
     Active Substance: ALBUMIN HUMAN
     Dosage: 25 %
     Route: 065
     Dates: start: 20210202, end: 20210208
  56. FILGRASTIM [Concomitant]
     Active Substance: FILGRASTIM
     Indication: NEUTROPENIA
     Dosage: UNK
     Route: 065
     Dates: start: 20201128
  57. MAGNESIUM SULFATE. [Concomitant]
     Active Substance: MAGNESIUM SULFATE
     Dosage: UNK
     Route: 065
     Dates: start: 20210131, end: 20210131
  58. TEICOPLANIN [Concomitant]
     Active Substance: TEICOPLANIN
     Indication: PNEUMONIA
     Dosage: UNK
     Route: 065
     Dates: start: 20210123, end: 20210202
  59. LEVOFLOXACIN HEMIHYDRATE [Concomitant]
     Active Substance: LEVOFLOXACIN
     Indication: PNEUMONIA
     Dosage: UNK
     Route: 065
     Dates: start: 20210116, end: 20210203
  60. SODIUM CHLORIDE. [Concomitant]
     Active Substance: SODIUM CHLORIDE
     Indication: SEPSIS
     Dosage: UNK
     Route: 065
     Dates: start: 20210129, end: 20210129
  61. GLUCOSE [Concomitant]
     Active Substance: DEXTROSE
     Indication: WEIGHT DECREASED
     Dosage: UNK
     Route: 065
     Dates: start: 20210130, end: 20210130
  62. CALCIUM GLUCONATE. [Concomitant]
     Active Substance: CALCIUM GLUCONATE
     Indication: ACUTE KIDNEY INJURY
     Dosage: UNK
     Route: 065
     Dates: start: 20210205, end: 20210205
  63. DEXAMETHASONE SODIUM PHOSPHATE. [Concomitant]
     Active Substance: DEXAMETHASONE SODIUM PHOSPHATE
     Dosage: UNK
     Route: 065
     Dates: start: 20210123, end: 20210207
  64. VASOPRESSIN. [Concomitant]
     Active Substance: VASOPRESSIN
     Indication: HYPOTENSION
     Dosage: UNK
     Route: 065
     Dates: start: 20210217, end: 20210217
  65. HEPARINOID [Concomitant]
     Active Substance: CHONDROITIN SULFATE (BOVINE)
     Indication: DRY SKIN
     Dosage: UNK
     Route: 065
     Dates: start: 20210107
  66. ZINC OXIDE. [Concomitant]
     Active Substance: ZINC OXIDE
     Route: 065
     Dates: start: 20210206
  67. INSULIN HUMAN [Concomitant]
     Active Substance: INSULIN HUMAN
     Indication: PROPHYLAXIS
     Dosage: UNK
     Route: 065
     Dates: start: 20210129
  68. ALBUMIN [Concomitant]
     Active Substance: ALBUMIN HUMAN
     Dosage: 25 %
     Route: 065
     Dates: start: 20210210, end: 20210210
  69. ALBUMIN [Concomitant]
     Active Substance: ALBUMIN HUMAN
     Dosage: 5 %
     Route: 065
     Dates: start: 20210217, end: 20210217
  70. ALBUMIN [Concomitant]
     Active Substance: ALBUMIN HUMAN
     Dosage: 5 %
     Route: 065
     Dates: start: 20210217, end: 20210217
  71. SODIUM BICARBONATE. [Concomitant]
     Active Substance: SODIUM BICARBONATE
     Indication: ACUTE KIDNEY INJURY
     Dosage: UNK
     Route: 065
     Dates: start: 20200731, end: 20210204
  72. SODIUM BICARBONATE. [Concomitant]
     Active Substance: SODIUM BICARBONATE
     Indication: STOMATITIS
     Dosage: UNK
     Route: 065
     Dates: start: 20210215, end: 20210215
  73. TEICOPLANIN [Concomitant]
     Active Substance: TEICOPLANIN
     Dosage: UNK
     Route: 065
     Dates: start: 20210208, end: 20210210
  74. ACICLOVIR [Concomitant]
     Active Substance: ACYCLOVIR
     Dosage: UNK
     Route: 065
     Dates: start: 20210215
  75. SOLDEM 1 [Concomitant]
     Active Substance: DEXTROSE\SODIUM CHLORIDE\SODIUM LACTATE
     Indication: PROPHYLAXIS
     Dosage: UNK
     Route: 065
     Dates: start: 20210202, end: 20210202
  76. SODIUM CHLORIDE. [Concomitant]
     Active Substance: SODIUM CHLORIDE
     Dosage: UNK
     Route: 065
     Dates: start: 20210130, end: 20210130
  77. GLUCOSE [Concomitant]
     Active Substance: DEXTROSE
     Dosage: UNK
     Route: 065
     Dates: start: 20210201, end: 20210201
  78. GLUCOSE [Concomitant]
     Active Substance: DEXTROSE
     Dosage: UNK
     Route: 065
     Dates: start: 20210204
  79. POTASSIUM CHLORIDE. [Concomitant]
     Active Substance: POTASSIUM CHLORIDE
     Indication: HYPOKALAEMIA
     Dosage: UNK
     Route: 065
     Dates: start: 20201127, end: 20210131
  80. POTASSIUM CHLORIDE. [Concomitant]
     Active Substance: POTASSIUM CHLORIDE
     Dosage: UNK
     Route: 065
     Dates: start: 20210125, end: 20210129
  81. MEDLENIK [Concomitant]
     Active Substance: CUPRIC SULFATE\FERRIC CHLORIDE\MANGANESE CHLORIDE\POTASSIUM IODIDE\ZINC SULFATE
     Indication: WEIGHT DECREASED
     Dosage: UNK
     Route: 065
     Dates: start: 20210204
  82. AMIODARONE HYDROCHLORIDE. [Concomitant]
     Active Substance: AMIODARONE HYDROCHLORIDE
     Indication: ATRIAL FIBRILLATION
     Dosage: UNK
     Route: 065
     Dates: start: 20210217, end: 20210217
  83. WHITE PETROLATUM [Concomitant]
     Active Substance: PETROLATUM
     Indication: DRY SKIN
     Dosage: UNK
     Route: 065
     Dates: start: 20210116
  84. FLUDARABINE [Concomitant]
     Active Substance: FLUDARABINE PHOSPHATE
     Indication: CHEMOTHERAPY
     Dosage: UNK
     Route: 065
     Dates: start: 20200206, end: 20200208
  85. DEXAMETHASONE. [Concomitant]
     Active Substance: DEXAMETHASONE
     Indication: CHEMOTHERAPY
     Dosage: UNK
     Route: 065
     Dates: start: 20191209
  86. INSULIN HUMAN [Concomitant]
     Active Substance: INSULIN HUMAN
     Dosage: UNK
     Route: 065
     Dates: start: 20210207, end: 20210212
  87. NORADRENALINE [Concomitant]
     Active Substance: NOREPINEPHRINE
     Indication: SEPSIS
     Dosage: UNK
     Route: 065
     Dates: start: 20210119, end: 20210121
  88. FUROSEMIDE. [Concomitant]
     Active Substance: FUROSEMIDE
     Indication: PROPHYLAXIS
     Dosage: UNK
     Route: 065
     Dates: start: 20210116, end: 20210203
  89. GABEXATE MESILATE [Concomitant]
     Active Substance: GABEXATE MESYLATE
     Indication: AMYLASE INCREASED
     Dosage: UNK
     Route: 065
     Dates: start: 20210208
  90. MEROPENEM. [Concomitant]
     Active Substance: MEROPENEM
     Dosage: UNK
     Route: 065
     Dates: start: 20210210
  91. SOLDEM 1 [Concomitant]
     Active Substance: DEXTROSE\SODIUM CHLORIDE\SODIUM LACTATE
     Dosage: UNK
     Route: 065
     Dates: start: 20210203, end: 20210204
  92. SODIUM CHLORIDE. [Concomitant]
     Active Substance: SODIUM CHLORIDE
     Indication: HYPERNATRAEMIA
     Dosage: UNK
     Route: 065
     Dates: start: 20210129, end: 20210129
  93. SODIUM CHLORIDE. [Concomitant]
     Active Substance: SODIUM CHLORIDE
     Dosage: UNK
     Route: 065
     Dates: start: 20210201, end: 20210201
  94. GLUCOSE [Concomitant]
     Active Substance: DEXTROSE
     Indication: HYPERNATRAEMIA
     Dosage: UNK
     Route: 065
     Dates: start: 20210129, end: 20210129
  95. POTASSIUM CHLORIDE. [Concomitant]
     Active Substance: POTASSIUM CHLORIDE
     Dosage: UNK
     Route: 065
     Dates: start: 20210121, end: 20210121
  96. MULTAMIN [Concomitant]
     Active Substance: VITAMINS
     Indication: WEIGHT DECREASED
     Dosage: UNK
     Route: 065
     Dates: start: 20210204
  97. ANTITHROMBIN GAMMA [Concomitant]
     Dosage: UNK
     Route: 065
     Dates: start: 20210212, end: 20210214
  98. CICLOSPORIN [Concomitant]
     Active Substance: CYCLOSPORINE
     Dosage: UNK
     Route: 065
     Dates: start: 20210215, end: 20210215
  99. LANDIOLOL HYDROCHLORIDE [Concomitant]
     Active Substance: LANDIOLOL HYDROCHLORIDE
     Indication: ATRIAL FIBRILLATION
     Dosage: UNK
     Route: 065
     Dates: start: 20210214, end: 20210214

REACTIONS (1)
  - Cytokine release syndrome [Fatal]

NARRATIVE: CASE EVENT DATE: 20210211
